FAERS Safety Report 4549866-5 (Version None)
Quarter: 2004Q4

REPORT INFORMATION
  Report Type: 
  Country: None (occurrence: None)
  Receive Date: 20041227
  Receipt Date: 20041004
  Transmission Date: 20050328
  Serious: No
  Sender: FDA-Public Use
  Company Number: 04P-163-0276013-00

PATIENT
  Age: 70 Year
  Sex: Female
  Weight: 66.6788 kg

DRUGS (6)
  1. HUMIRA [Suspect]
     Indication: RHEUMATOID ARTHRITIS
     Dosage: 0.8 MG, 1 IN 2 WK, SUBCUTANEOUS
     Route: 058
     Dates: start: 20040701
  2. PREDNISONE [Concomitant]
  3. LEVOTHYROXINE SODIUM [Concomitant]
  4. PROTONIC [Concomitant]
  5. LOTREL [Concomitant]
  6. ZOCOR [Concomitant]

REACTIONS (1)
  - DRUG INEFFECTIVE [None]
